FAERS Safety Report 13593431 (Version 1)
Quarter: 2017Q2

REPORT INFORMATION
  Report Type: Spontaneous
  Country: FR (occurrence: FR)
  Receive Date: 20170530
  Receipt Date: 20170530
  Transmission Date: 20170830
  Serious: Yes (Other)
  Sender: FDA-Public Use
  Company Number: FR-BRISTOL-MYERS SQUIBB COMPANY-BMS-2017-045436

PATIENT
  Age: 46 Year
  Sex: Female

DRUGS (1)
  1. KENACORT [Suspect]
     Active Substance: TRIAMCINOLONE
     Indication: HYPERSENSITIVITY
     Dosage: 40 MG, ONE TIME DOSE
     Route: 030
     Dates: start: 20160607

REACTIONS (2)
  - Lipoatrophy [Not Recovered/Not Resolved]
  - Product use in unapproved indication [Unknown]
